FAERS Safety Report 8319350-1 (Version None)
Quarter: 2012Q2

REPORT INFORMATION
  Report Type: 
  Country: None (occurrence: None)
  Receive Date: 20120426
  Receipt Date: 20120426
  Transmission Date: 20120825
  Serious: No
  Sender: FDA-Public Use
  Company Number: None

PATIENT
  Sex: Female

DRUGS (1)
  1. ENBREL [Suspect]
     Indication: ANKYLOSING SPONDYLITIS
     Dosage: 50MG WEEKLY  SQ
     Route: 058
     Dates: start: 20111202, end: 20120302

REACTIONS (9)
  - SKIN INFECTION [None]
  - URTICARIA [None]
  - CONTUSION [None]
  - OEDEMA PERIPHERAL [None]
  - PALLOR [None]
  - INJECTION SITE RASH [None]
  - SINUSITIS [None]
  - ARTHRALGIA [None]
  - VISION BLURRED [None]
